FAERS Safety Report 25853335 (Version 1)
Quarter: 2025Q3

REPORT INFORMATION
  Report Type: Spontaneous
  Country: US (occurrence: None)
  Receive Date: 20250925
  Receipt Date: 20250925
  Transmission Date: 20251021
  Serious: Yes (Other)
  Sender: FDA-CTU
  Company Number: None

PATIENT
  Sex: Female

DRUGS (11)
  1. BIOTIN\MINOXIDIL [Suspect]
     Active Substance: BIOTIN\MINOXIDIL
     Indication: Alopecia
     Dosage: FREQUENCY : DAILY;?
     Route: 048
  2. CALCIUM PANTOTHENATE [Suspect]
     Active Substance: CALCIUM PANTOTHENATE
  3. VITAMIN B6 [Suspect]
     Active Substance: PYRIDOXINE HYDROCHLORIDE
  4. ASCORBIC ACID [Suspect]
     Active Substance: ASCORBIC ACID
  5. ZINC SULFATE [Suspect]
     Active Substance: ZINC SULFATE
  6. FLUOCINONIDE [Suspect]
     Active Substance: FLUOCINONIDE
  7. ACYCLOVIR [Concomitant]
     Active Substance: ACYCLOVIR
  8. TRIAMCINOLONE [Concomitant]
     Active Substance: TRIAMCINOLONE
  9. fluocinonide external solution [Concomitant]
  10. LIPITOR [Concomitant]
     Active Substance: ATORVASTATIN CALCIUM
  11. TRIAMCINOLONE [Suspect]
     Active Substance: TRIAMCINOLONE

REACTIONS (1)
  - Rash [None]
